FAERS Safety Report 19920090 (Version 1)
Quarter: 2021Q4

REPORT INFORMATION
  Report Type: Spontaneous
  Country: US (occurrence: US)
  Receive Date: 20211006
  Receipt Date: 20211006
  Transmission Date: 20220304
  Serious: No
  Sender: FDA-Public Use
  Company Number: 2021A734727

PATIENT
  Sex: Male

DRUGS (3)
  1. SYMBICORT [Suspect]
     Active Substance: BUDESONIDE\FORMOTEROL FUMARATE DIHYDRATE
     Indication: Asthma
     Dosage: PATIENT TOOK SYMBICORT 1 PUFF, TWO TIMES A DAY
     Route: 055
     Dates: start: 2021
  2. SYMBICORT [Suspect]
     Active Substance: BUDESONIDE\FORMOTEROL FUMARATE DIHYDRATE
     Indication: Nasopharyngitis
     Dosage: PATIENT TOOK SYMBICORT 1 PUFF, TWO TIMES A DAY
     Route: 055
     Dates: start: 2021
  3. SYMBICORT [Suspect]
     Active Substance: BUDESONIDE\FORMOTEROL FUMARATE DIHYDRATE
     Indication: Cough
     Dosage: PATIENT TOOK SYMBICORT 1 PUFF, TWO TIMES A DAY
     Route: 055
     Dates: start: 2021

REACTIONS (2)
  - Asthma [Unknown]
  - Off label use [Unknown]
